FAERS Safety Report 4921834-0 (Version None)
Quarter: 2006Q1

REPORT INFORMATION
  Report Type: 
  Country: None (occurrence: None)
  Receive Date: 20060224
  Receipt Date: 20050728
  Transmission Date: 20060701
  Serious: No
  Sender: FDA-Public Use
  Company Number: US-BRISTOL-MYERS SQUIBB COMPANY-13129085

PATIENT
  Sex: Male

DRUGS (1)
  1. MONISTAT 1 COMBINATION PACK [Suspect]
     Indication: FUNGAL INFECTION
     Dates: start: 20050728, end: 20050728

REACTIONS (2)
  - DRUG ADMINISTRATION ERROR [None]
  - GENITAL BURNING SENSATION [None]
